FAERS Safety Report 26157425 (Version 1)
Quarter: 2025Q4

REPORT INFORMATION
  Report Type: Spontaneous
  Country: US (occurrence: None)
  Receive Date: 20251212
  Receipt Date: 20251212
  Transmission Date: 20260117
  Serious: Yes (Hospitalization)
  Sender: FDA-CTU
  Company Number: None

PATIENT
  Age: 59 Year
  Sex: Female

DRUGS (1)
  1. RINVOQ [Suspect]
     Active Substance: UPADACITINIB
     Indication: Colitis ulcerative
     Dosage: FREQUENCY: ONCE
     Route: 048

REACTIONS (4)
  - Haematochezia [None]
  - Diarrhoea [None]
  - Abdominal pain [None]
  - Weight decreased [None]

NARRATIVE: CASE EVENT DATE: 20250701
